FAERS Safety Report 20755805 (Version 1)
Quarter: 2022Q2

REPORT INFORMATION
  Report Type: Report from Study
  Country: CO (occurrence: CO)
  Receive Date: 20220427
  Receipt Date: 20220427
  Transmission Date: 20220720
  Serious: Yes (Hospitalization, Other)
  Sender: FDA-Public Use
  Company Number: CO-ABBVIE-22K-036-4371777-00

PATIENT
  Sex: Male
  Weight: 70 kg

DRUGS (2)
  1. ZEMPLAR [Suspect]
     Active Substance: PARICALCITOL
     Indication: Hyperparathyroidism secondary
     Route: 042
     Dates: start: 20180619, end: 20220316
  2. ZEMPLAR [Suspect]
     Active Substance: PARICALCITOL
     Indication: Chronic kidney disease

REACTIONS (9)
  - Infection [Recovered/Resolved]
  - Stress [Recovered/Resolved]
  - Inflammation [Recovered/Resolved]
  - Asphyxia [Recovered/Resolved]
  - Blister [Recovered/Resolved]
  - Tooth abscess [Recovered/Resolved]
  - Inflammation [Recovered/Resolved]
  - Toothache [Recovered/Resolved]
  - Peripheral swelling [Unknown]

NARRATIVE: CASE EVENT DATE: 20220101
